FAERS Safety Report 11722424 (Version 4)
Quarter: 2016Q1

REPORT INFORMATION
  Report Type: Report from Study
  Country: US (occurrence: US)
  Receive Date: 20151111
  Receipt Date: 20160209
  Transmission Date: 20160525
  Serious: Yes (Hospitalization, Other)
  Sender: FDA-Public Use
  Company Number: PHHO2014US019909

PATIENT
  Age: 45 Year
  Sex: Female
  Weight: 67.4 kg

DRUGS (3)
  1. IPILIMUMAB [Suspect]
     Active Substance: IPILIMUMAB
     Indication: MALIGNANT MELANOMA
     Dosage: 3 MG/KG, CYCLIC
     Route: 042
     Dates: start: 20131230, end: 20140121
  2. DABRAFENIB [Suspect]
     Active Substance: DABRAFENIB
     Indication: MALIGNANT MELANOMA
     Dosage: 100 MG, BID
     Route: 048
     Dates: start: 20131216, end: 20140209
  3. TRAMETINIB [Suspect]
     Active Substance: TRAMETINIB
     Indication: MALIGNANT MELANOMA
     Dosage: 1 MG, QD
     Route: 048
     Dates: start: 20131216

REACTIONS (4)
  - Colitis [Recovered/Resolved]
  - Diarrhoea [Unknown]
  - Large intestine perforation [Recovered/Resolved]
  - Gastrointestinal toxicity [Unknown]

NARRATIVE: CASE EVENT DATE: 20140205
